FAERS Safety Report 13601859 (Version 2)
Quarter: 2017Q2

REPORT INFORMATION
  Report Type: Spontaneous
  Country: FR (occurrence: FR)
  Receive Date: 20170601
  Receipt Date: 20170601
  Transmission Date: 20170830
  Serious: Yes (Other)
  Sender: FDA-Public Use
  Company Number: FR-009507513-1705FRA012239

PATIENT
  Age: 62 Year
  Sex: Female

DRUGS (3)
  1. NORSET [Suspect]
     Active Substance: MIRTAZAPINE
     Indication: DEPRESSION
     Dosage: 30 MG (2 TABLETS), IN EVENING AT BEDTIME
     Route: 048
     Dates: start: 201609
  2. LYSANXIA [Concomitant]
     Active Substance: PRAZEPAM
  3. NOCTAMIDE [Concomitant]
     Active Substance: LORMETAZEPAM

REACTIONS (16)
  - Haematochezia [Unknown]
  - Gastrooesophageal reflux disease [Recovered/Resolved]
  - Frequent bowel movements [Unknown]
  - Salivary hypersecretion [Unknown]
  - Haemorrhoids [Not Recovered/Not Resolved]
  - Blood glucose abnormal [Unknown]
  - Oropharyngeal pain [Unknown]
  - Illness anxiety disorder [Unknown]
  - Blood cholesterol abnormal [Unknown]
  - Drug ineffective [Unknown]
  - Dry mouth [Unknown]
  - Nervousness [Recovered/Resolved]
  - Abnormal faeces [Unknown]
  - Genital prolapse [Unknown]
  - White blood cell count abnormal [Unknown]
  - Dyskinesia [Unknown]

NARRATIVE: CASE EVENT DATE: 20170511
